FAERS Safety Report 4411320-9 (Version None)
Quarter: 2004Q2

REPORT INFORMATION
  Report Type: 
  Country: None (occurrence: None)
  Receive Date: 20040630
  Receipt Date: 20040512
  Transmission Date: 20050107
  Serious: No
  Sender: FDA-Public Use
  Company Number: 04P-163-0259519-00

PATIENT
  Age: 62 Year
  Sex: Female
  Weight: 106.5953 kg

DRUGS (11)
  1. HUMIRA [Suspect]
     Indication: RHEUMATOID ARTHRITIS
     Dosage: 40 MG, 1 IN 2 WK, SUBCUTANEOUS
     Route: 058
     Dates: start: 20040419
  2. ROFECOXIB [Concomitant]
  3. PREDNISONE [Concomitant]
  4. FOLIC ACID [Concomitant]
  5. LANSOPRAZOLE [Concomitant]
  6. FLUTICASONE PROPIONATE [Concomitant]
  7. METHOTREXATE [Concomitant]
  8. LEVOTHYROXINE SODIUM [Concomitant]
  9. ATENOLOL [Concomitant]
  10. DYAZIDE [Concomitant]
  11. IRON [Concomitant]

REACTIONS (4)
  - DRUG INEFFECTIVE [None]
  - INJECTION SITE BURNING [None]
  - INJECTION SITE PAIN [None]
  - PHARYNGOLARYNGEAL PAIN [None]
